FAERS Safety Report 9454679 (Version 1)
Quarter: 2013Q3

REPORT INFORMATION
  Report Type: Spontaneous
  Country: GB (occurrence: GB)
  Receive Date: 20130812
  Receipt Date: 20130812
  Transmission Date: 20140515
  Serious: Yes (Life-Threatening)
  Sender: FDA-Public Use
  Company Number: PHHY2013GB085728

PATIENT
  Sex: 0

DRUGS (5)
  1. CANDESARTAN CILEXETIL [Suspect]
     Indication: CARDIAC FAILURE
     Dosage: 4 MG
     Route: 048
     Dates: start: 20130710, end: 20130729
  2. FUROSEMIDE [Concomitant]
  3. SILDENAFIL [Concomitant]
  4. BISOPROLOL [Concomitant]
  5. TRAMADOL [Concomitant]

REACTIONS (9)
  - Mood altered [Recovered/Resolved]
  - Tearfulness [Recovered/Resolved]
  - Anger [Recovered/Resolved]
  - Aggression [Recovered/Resolved]
  - Irritability [Recovered/Resolved]
  - Hypersomnia [Recovered/Resolved]
  - Feeling abnormal [Recovered/Resolved]
  - Somnolence [Recovered/Resolved]
  - Impaired driving ability [Recovered/Resolved]
